FAERS Safety Report 7774149-X (Version None)
Quarter: 2011Q3

REPORT INFORMATION
  Report Type: 
  Country: None (occurrence: None)
  Receive Date: 20110921
  Receipt Date: 20110914
  Transmission Date: 20111222
  Serious: Yes (Hospitalization, Other)
  Sender: FDA-Public Use
  Company Number: VAL_00613_2011

PATIENT
  Age: 77 Year
  Sex: Female
  Weight: 75 kg

DRUGS (5)
  1. TRAZODONE HCL [Suspect]
     Indication: DEPRESSIVE SYMPTOM
     Dosage: 100 MG QD
  2. AMIODARONE HCL [Concomitant]
  3. ESCITALOPRAM [Concomitant]
  4. OMEPRAZOLE [Concomitant]
  5. CARBAMAZEPINE [Suspect]
     Indication: PRODUCT USED FOR UNKNOWN INDICATION
     Dosage: 200 MG 1X/12 HOURS

REACTIONS (14)
  - PSYCHOMOTOR RETARDATION [None]
  - CONDITION AGGRAVATED [None]
  - MOOD ALTERED [None]
  - ESSENTIAL TREMOR [None]
  - ATAXIA [None]
  - PSYCHOTIC DISORDER [None]
  - IRRITABILITY [None]
  - DEPRESSIVE SYMPTOM [None]
  - DECREASED APPETITE [None]
  - TOXICITY TO VARIOUS AGENTS [None]
  - DELUSION [None]
  - DRUG INTERACTION [None]
  - INSOMNIA [None]
  - HYPOTONIA [None]
